FAERS Safety Report 9228254 (Version 1)
Quarter: 2013Q2

REPORT INFORMATION
  Report Type: Report from Study
  Country: DE (occurrence: DE)
  Receive Date: 20130412
  Receipt Date: 20130412
  Transmission Date: 20140414
  Serious: Yes (Death, Hospitalization)
  Sender: FDA-Public Use
  Company Number: DE-ROCHE-1210285

PATIENT
  Age: 81 Year
  Sex: Female

DRUGS (2)
  1. ALTEPLASE [Suspect]
     Indication: PULMONARY EMBOLISM
     Route: 042
  2. HEPARIN [Concomitant]
     Indication: PULMONARY EMBOLISM
     Route: 042

REACTIONS (4)
  - Upper gastrointestinal haemorrhage [Fatal]
  - Puncture site haemorrhage [Fatal]
  - Mucosal ulceration [Fatal]
  - Myocardial infarction [Fatal]
